FAERS Safety Report 4678471-5 (Version None)
Quarter: 2005Q2

REPORT INFORMATION
  Report Type: 
  Country: None (occurrence: None)
  Receive Date: 20050601
  Receipt Date: 20050309
  Transmission Date: 20051028
  Serious: Yes (Hospitalization)
  Sender: FDA-Public Use
  Company Number: CA-ROCHE-397855

PATIENT
  Age: 50 Year
  Sex: Male
  Weight: 57.5 kg

DRUGS (7)
  1. PEG-INTERFERON ALFA 2A (RO 25-8310) [Suspect]
     Dosage: DOSE FORM REPORTED: PRE-FILLED SYRINGE.
     Route: 058
     Dates: start: 20050308
  2. PEG-INTERFERON ALFA 2A (RO 25-8310) [Suspect]
     Dosage: PRE-FILLED SYRINGE.
     Route: 058
     Dates: start: 20040618, end: 20050128
  3. PEG-INTERFERON ALFA 2A (RO 25-8310) [Suspect]
     Route: 058
     Dates: start: 20050204
  4. RIBAVIRIN [Suspect]
     Dosage: 600 MG - AM, 400 MG - PM.
     Route: 048
     Dates: start: 20040618
  5. BETNOVATE CREAM [Concomitant]
     Dosage: BETNOVATE CREAM 1%.
     Dates: start: 20040803
  6. BENADRYL [Concomitant]
  7. SYNTHROID [Concomitant]
     Dates: start: 19860615

REACTIONS (4)
  - CELLULITIS [None]
  - PNEUMONIA [None]
  - PRURITUS [None]
  - RASH [None]
